FAERS Safety Report 7785287-X (Version None)
Quarter: 2011Q3

REPORT INFORMATION
  Report Type: 
  Country: None (occurrence: None)
  Receive Date: 20110929
  Receipt Date: 20110927
  Transmission Date: 20111222
  Serious: No
  Sender: FDA-Public Use
  Company Number: US-PFIZER INC-2011230085

PATIENT
  Sex: Male

DRUGS (2)
  1. LIPITOR [Suspect]
     Dosage: 40 MG, UNK
  2. ZETIA [Suspect]
     Dosage: UNK

REACTIONS (2)
  - VERY LOW DENSITY LIPOPROTEIN INCREASED [None]
  - BLOOD TRIGLYCERIDES INCREASED [None]
